FAERS Safety Report 4987313-X (Version None)
Quarter: 2006Q2

REPORT INFORMATION
  Report Type: 
  Country: None (occurrence: None)
  Receive Date: 20060501
  Receipt Date: 20050421
  Transmission Date: 20061013
  Serious: Yes (Hospitalization)
  Sender: FDA-Public Use
  Company Number: US-MERCK-0504USA04254

PATIENT
  Age: 49 Year
  Sex: Female
  Weight: 45 kg

DRUGS (6)
  1. VIOXX [Suspect]
     Indication: OSTEOARTHRITIS
     Route: 048
     Dates: start: 20010501, end: 20010913
  2. VIOXX [Suspect]
     Indication: PAIN
     Route: 048
     Dates: start: 20010501, end: 20010913
  3. CLIMARA [Concomitant]
     Indication: OSTEOPOROSIS
     Route: 065
  4. DILAUDID [Concomitant]
     Indication: PAIN
     Route: 065
  5. MIACALCIN [Concomitant]
     Route: 065
  6. DEMEROL [Concomitant]
     Route: 065

REACTIONS (35)
  - ABDOMINAL PAIN [None]
  - BACK PAIN [None]
  - CALCULUS URETERIC [None]
  - CARDIAC FAILURE CONGESTIVE [None]
  - CONCUSSION [None]
  - CORONARY ARTERY DISEASE [None]
  - CYANOSIS [None]
  - DEPRESSED LEVEL OF CONSCIOUSNESS [None]
  - DRUG DEPENDENCE [None]
  - DRUG WITHDRAWAL CONVULSIONS [None]
  - DRUG WITHDRAWAL SYNDROME [None]
  - ENDOCARDITIS BACTERIAL [None]
  - FALL [None]
  - FEMORAL NECK FRACTURE [None]
  - HIP FRACTURE [None]
  - HYPOTENSION [None]
  - LIMB INJURY [None]
  - MALLORY-WEISS SYNDROME [None]
  - MENTAL DISORDER [None]
  - MENTAL STATUS CHANGES [None]
  - MYOCARDIAL INFARCTION [None]
  - NAUSEA [None]
  - NEPHROLITHIASIS [None]
  - OESOPHAGEAL DISORDER [None]
  - OESOPHAGEAL STENOSIS [None]
  - OSTEOPOROSIS [None]
  - OVERDOSE [None]
  - PAIN [None]
  - PNEUMONIA [None]
  - RENAL COLIC [None]
  - ROAD TRAFFIC ACCIDENT [None]
  - SEPSIS [None]
  - SPINAL COMPRESSION FRACTURE [None]
  - STAPHYLOCOCCAL INFECTION [None]
  - URINARY TRACT INFECTION [None]
